FAERS Safety Report 8480993-6 (Version None)
Quarter: 2012Q3

REPORT INFORMATION
  Report Type: 
  Country: None (occurrence: None)
  Receive Date: 20120702
  Receipt Date: 20120621
  Transmission Date: 20120928
  Serious: Yes (Hospitalization)
  Sender: FDA-Public Use
  Company Number: JP-ELI_LILLY_AND_COMPANY-JP201203004095

PATIENT
  Age: 75 Year
  Sex: Female

DRUGS (1)
  1. FORTEO [Suspect]
     Dosage: UNK
     Route: 058
     Dates: start: 20120305

REACTIONS (5)
  - CONTUSION [None]
  - FRACTURE [None]
  - MUSCULAR WEAKNESS [None]
  - HAEMORRHAGE SUBCUTANEOUS [None]
  - FALL [None]
